FAERS Safety Report 9219668 (Version 1)
Quarter: 2013Q2

REPORT INFORMATION
  Report Type: Spontaneous
  Country: NO (occurrence: NO)
  Receive Date: 20130409
  Receipt Date: 20130409
  Transmission Date: 20140414
  Serious: Yes (Death)
  Sender: FDA-Public Use
  Company Number: NO-ROCHE-1205970

PATIENT
  Age: 87 Year
  Sex: Male

DRUGS (1)
  1. ACTILYSE [Suspect]
     Indication: CEREBROVASCULAR ACCIDENT
     Dosage: HALF THROMBOLYTIC DOSE
     Route: 051
     Dates: start: 20110322, end: 20110323

REACTIONS (2)
  - Epistaxis [Fatal]
  - Death [Fatal]
